FAERS Safety Report 11547252 (Version 1)
Quarter: 2015Q3

REPORT INFORMATION
  Report Type: Spontaneous
  Country: US (occurrence: US)
  Receive Date: 20150924
  Receipt Date: 20150924
  Transmission Date: 20151125
  Serious: Yes (Death, Hospitalization)
  Sender: FDA-Public Use
  Company Number: US-MYLANLABS-2015M1031983

PATIENT

DRUGS (1)
  1. DOXORUBICIN [Suspect]
     Active Substance: DOXORUBICIN
     Indication: HEPATOCELLULAR CARCINOMA
     Dosage: 50 MG/VIAL
     Route: 050

REACTIONS (4)
  - Abdominal pain upper [Fatal]
  - Sepsis [Fatal]
  - Pneumonia [Fatal]
  - Ascites [Fatal]
